FAERS Safety Report 7527126-8 (Version None)
Quarter: 2011Q2

REPORT INFORMATION
  Report Type: 
  Country: None (occurrence: None)
  Receive Date: 20110607
  Receipt Date: 20110526
  Transmission Date: 20111010
  Serious: Yes (Death)
  Sender: FDA-Public Use
  Company Number: RO-BRISTOL-MYERS SQUIBB COMPANY-15784507

PATIENT
  Age: 50 Year
  Sex: Male

DRUGS (3)
  1. CETUXIMAB [Suspect]
     Indication: GASTROOESOPHAGEAL CANCER
     Dosage: 5MG/ML NO OF INF:13
     Route: 042
     Dates: start: 20101027, end: 20110119
  2. XELODA [Suspect]
     Indication: GASTROOESOPHAGEAL CANCER
     Route: 048
     Dates: start: 20101027, end: 20110122
  3. CISPLATIN [Suspect]
     Indication: GASTROOESOPHAGEAL CANCER
     Route: 042
     Dates: start: 20101027, end: 20110119

REACTIONS (6)
  - HYPOALBUMINAEMIA [None]
  - CARDIO-RESPIRATORY ARREST [None]
  - HYPONATRAEMIA [None]
  - ANAEMIA [None]
  - HYPOCALCAEMIA [None]
  - HYPOMAGNESAEMIA [None]
